FAERS Safety Report 5408205-8 (Version None)
Quarter: 2007Q3

REPORT INFORMATION
  Report Type: 
  Country: None (occurrence: None)
  Receive Date: 20070806
  Receipt Date: 20070806
  Transmission Date: 20080115
  Serious: Yes (Hospitalization)
  Sender: FDA-Public Use
  Company Number: None

PATIENT
  Sex: Female
  Weight: 71.81 kg

DRUGS (2)
  1. CISPLATIN [Suspect]
     Dosage: 89 MG
  2. NAVELBINE [Suspect]
     Dosage: 106 MG TOTAL DOSE FOR DAY 1 AND 8

REACTIONS (8)
  - ALPHA HAEMOLYTIC STREPTOCOCCAL INFECTION [None]
  - CAUSTIC INJURY [None]
  - CULTURE URINE POSITIVE [None]
  - ERYTHEMA [None]
  - HAEMOGLOBIN DECREASED [None]
  - INFUSION SITE EXTRAVASATION [None]
  - NEUTROPHIL COUNT DECREASED [None]
  - PYREXIA [None]
